FAERS Safety Report 4854163-4 (Version None)
Quarter: 2005Q4

REPORT INFORMATION
  Report Type: 
  Country: None (occurrence: None)
  Receive Date: 20051213
  Receipt Date: 20051125
  Transmission Date: 20060501
  Serious: Yes (Hospitalization)
  Sender: FDA-Public Use
  Company Number: TRP_0662_2005

PATIENT
  Age: 52 Year
  Sex: Male

DRUGS (14)
  1. RIBASPHERE [Suspect]
     Indication: HEPATITIS C
     Dosage: 1200 MG QDAY PO
     Route: 048
     Dates: start: 20041130, end: 20051023
  2. INFERGEN [Suspect]
     Indication: HEPATITIS C
     Dosage: 9 MCG QDAY SC
     Route: 058
     Dates: start: 20041130, end: 20051023
  3. INTERFERON GAMMA 1B [Suspect]
     Indication: HEPATITIS C
     Dosage: 100 MG 3XWK SC
     Route: 058
     Dates: start: 20041130, end: 20051023
  4. PREVACID [Concomitant]
  5. PAXIL [Concomitant]
  6. ALBUTEROL [Concomitant]
  7. TYLENOL [Concomitant]
  8. IBUPROFEN [Concomitant]
  9. MAALOX FAST BLOCKER [Concomitant]
  10. MEGACE [Concomitant]
  11. LORTAB [Concomitant]
  12. HYDROCORTISOINE CREAM [Concomitant]
  13. VICODIN [Concomitant]
  14. ROBITUSSIN [Concomitant]

REACTIONS (12)
  - AMMONIA DECREASED [None]
  - AMNESIA [None]
  - BLOOD BILIRUBIN INCREASED [None]
  - BLOOD GLUCOSE INCREASED [None]
  - CONFUSIONAL STATE [None]
  - GRAND MAL CONVULSION [None]
  - HYPONATRAEMIA [None]
  - MENTAL STATUS CHANGES [None]
  - NYSTAGMUS [None]
  - POLYSUBSTANCE ABUSE [None]
  - PSYCHOMOTOR HYPERACTIVITY [None]
  - WHITE BLOOD CELL COUNT INCREASED [None]
